FAERS Safety Report 20771749 (Version 1)
Quarter: 2022Q2

REPORT INFORMATION
  Report Type: Spontaneous
  Country: US (occurrence: US)
  Receive Date: 20220430
  Receipt Date: 20220430
  Transmission Date: 20220721
  Serious: No
  Sender: FDA-Public Use
  Company Number: US-drreddys-SPO/USA/22/0149485

PATIENT
  Age: 26 Year
  Sex: Female

DRUGS (2)
  1. ACCUTANE [Suspect]
     Active Substance: ISOTRETINOIN
     Indication: Product used for unknown indication
     Dosage: RMA ISSUE DATE: 04 MARCH 2022 05:45:36 PM
  2. ACCUTANE [Suspect]
     Active Substance: ISOTRETINOIN
     Dosage: RMA ISSUE DATE: 2 DECEMBER 2021 12:30:23 PM, 4 FEBRUARY 2022 04:45:03 PM AND 4 MARCH 2022 05:45:36 P

REACTIONS (1)
  - Arthralgia [Unknown]
